FAERS Safety Report 13872975 (Version 3)
Quarter: 2018Q1

REPORT INFORMATION
  Report Type: Spontaneous
  Country: JP (occurrence: JP)
  Receive Date: 20170816
  Receipt Date: 20180214
  Transmission Date: 20180508
  Serious: Yes (Hospitalization, Congenital Anomaly)
  Sender: FDA-Public Use
  Company Number: JP-ASTELLAS-2017JP015623AA

PATIENT
  Age: 0 Day
  Sex: Female
  Weight: 2.3 kg

DRUGS (17)
  1. ALDOMET [Concomitant]
     Active Substance: METHYLDOPA
     Indication: FOETAL EXPOSURE DURING PREGNANCY
     Route: 064
     Dates: start: 20161007, end: 20161011
  2. SOLU-CORTEF [Concomitant]
     Active Substance: HYDROCORTISONE SODIUM SUCCINATE
     Indication: FOETAL EXPOSURE DURING PREGNANCY
     Route: 042
     Dates: start: 20161115, end: 20161115
  3. ALLEGRA [Concomitant]
     Active Substance: FEXOFENADINE HYDROCHLORIDE
     Indication: FOETAL EXPOSURE DURING PREGNANCY
     Route: 064
     Dates: start: 20160722, end: 20160805
  4. ALDOMET [Concomitant]
     Active Substance: METHYLDOPA
     Dosage: DOSE GRADUALLY INCREASED
     Route: 063
     Dates: start: 201611, end: 201611
  5. PREDNISOLONE. [Suspect]
     Active Substance: PREDNISOLONE
     Route: 064
     Dates: start: 201608, end: 20161115
  6. THYRADIN S [Concomitant]
     Active Substance: LEVOTHYROXINE SODIUM
     Indication: FOETAL EXPOSURE DURING PREGNANCY
     Dosage: 25 ?G, ONCE DAILY, IN THE MORNING
     Route: 064
     Dates: start: 201609, end: 20161115
  7. POLARAMINE [Concomitant]
     Active Substance: DEXCHLORPHENIRAMINE MALEATE
     Indication: MATERNAL EXPOSURE DURING BREAST FEEDING
     Route: 063
     Dates: start: 20161117, end: 20161216
  8. ALDOMET [Concomitant]
     Active Substance: METHYLDOPA
     Indication: MATERNAL EXPOSURE DURING BREAST FEEDING
     Route: 064
     Dates: start: 20161011, end: 20161031
  9. PREDNISOLONE. [Suspect]
     Active Substance: PREDNISOLONE
     Indication: MATERNAL EXPOSURE DURING BREAST FEEDING
     Route: 064
     Dates: start: 20160518, end: 201608
  10. THYRADIN S [Concomitant]
     Active Substance: LEVOTHYROXINE SODIUM
     Indication: MATERNAL EXPOSURE DURING BREAST FEEDING
     Dosage: 25 ?G, ONCE DAILY, IN THE MORNING
     Route: 063
     Dates: start: 20161117, end: 20161216
  11. PREDNISOLONE. [Suspect]
     Active Substance: PREDNISOLONE
     Indication: FOETAL EXPOSURE DURING PREGNANCY
     Route: 064
     Dates: start: 20160420, end: 20160518
  12. NIFEDIPINE. [Concomitant]
     Active Substance: NIFEDIPINE
     Indication: FOETAL EXPOSURE DURING PREGNANCY
     Route: 064
     Dates: start: 20161008, end: 20161011
  13. PREDNISOLONE. [Suspect]
     Active Substance: PREDNISOLONE
     Route: 063
     Dates: start: 20161117, end: 20161216
  14. ALDOMET [Concomitant]
     Active Substance: METHYLDOPA
     Route: 064
     Dates: start: 20161031, end: 20161115
  15. PROGRAF [Suspect]
     Active Substance: TACROLIMUS\TACROLIMUS ANHYDROUS
     Indication: FOETAL EXPOSURE DURING PREGNANCY
     Dosage: 3 MG, ONCE DAILY, IN THE MORNING
     Route: 064
     Dates: start: 201609, end: 20161018
  16. POLARAMINE [Concomitant]
     Active Substance: DEXCHLORPHENIRAMINE MALEATE
     Indication: FOETAL EXPOSURE DURING PREGNANCY
     Route: 064
     Dates: start: 20160812, end: 20161115
  17. ALDOMET [Concomitant]
     Active Substance: METHYLDOPA
     Route: 063
     Dates: start: 201611

REACTIONS (2)
  - Low birth weight baby [Recovered/Resolved]
  - Foetal growth restriction [Unknown]

NARRATIVE: CASE EVENT DATE: 20161115
